FAERS Safety Report 7936002-8 (Version None)
Quarter: 2011Q4

REPORT INFORMATION
  Report Type: 
  Country: None (occurrence: None)
  Receive Date: 20111123
  Receipt Date: 20111111
  Transmission Date: 20120403
  Serious: Yes (Hospitalization)
  Sender: FDA-Public Use
  Company Number: US-ELI_LILLY_AND_COMPANY-US201111005017

PATIENT
  Sex: Female

DRUGS (4)
  1. FISH OIL [Concomitant]
  2. CITRACAL [Concomitant]
  3. FORTEO [Suspect]
     Indication: OSTEOPOROSIS
     Dosage: 20 UG, QD
  4. DAILY VITAMINS [Concomitant]

REACTIONS (1)
  - HIP ARTHROPLASTY [None]
